FAERS Safety Report 10809294 (Version 1)
Quarter: 2015Q1

REPORT INFORMATION
  Report Type: Spontaneous
  Country: US (occurrence: None)
  Receive Date: 20150212
  Receipt Date: 20150212
  Transmission Date: 20150721
  Serious: Yes (Hospitalization)
  Sender: FDA-Public Use
  Company Number: None

PATIENT
  Age: 62 Year
  Sex: Male
  Weight: 67.1 kg

DRUGS (2)
  1. EFAVIRENZ/EMTRICITABINE/TENOFORVIR [Suspect]
     Active Substance: EFAVIRENZ\EMTRICITABINE\TENOFOVIR DISOPROXIL FUMARATE
     Indication: HIV INFECTION
     Route: 048
     Dates: start: 20140107, end: 20150208
  2. LEDIPASVIR/SOFOSBUVIR [Suspect]
     Active Substance: LEDIPASVIR\SOFOSBUVIR
     Indication: HEPATITIS C
     Route: 048
     Dates: start: 20150108, end: 20150129

REACTIONS (11)
  - Acute kidney injury [None]
  - Nephropathy toxic [None]
  - Metabolic acidosis [None]
  - Urine analysis abnormal [None]
  - Fanconi syndrome [None]
  - Renal tubular necrosis [None]
  - Procedural nausea [None]
  - Decreased appetite [None]
  - Blood creatinine increased [None]
  - Flank pain [None]
  - Procedural vomiting [None]

NARRATIVE: CASE EVENT DATE: 20150208
